FAERS Safety Report 5002740-2 (Version None)
Quarter: 2006Q2

REPORT INFORMATION
  Report Type: 
  Country: None (occurrence: None)
  Receive Date: 20060516
  Receipt Date: 20060509
  Transmission Date: 20061013
  Serious: Yes (Other)
  Sender: FDA-Public Use
  Company Number: DE-JNJFOC-20060502067

PATIENT
  Age: 84 Year
  Sex: Male

DRUGS (4)
  1. REMINYL [Suspect]
     Indication: DRUG USE FOR UNKNOWN INDICATION
     Route: 048
  2. TORSEMIDE [Interacting]
     Route: 048
  3. CAPOZIDE [Interacting]
     Route: 048
  4. CAPOZIDE [Interacting]
     Route: 048

REACTIONS (2)
  - BLOOD PRESSURE INCREASED [None]
  - DRUG INTERACTION [None]
